FAERS Safety Report 5310943-2 (Version None)
Quarter: 2007Q2

REPORT INFORMATION
  Report Type: 
  Country: None (occurrence: None)
  Receive Date: 20070426
  Receipt Date: 20070426
  Transmission Date: 20071010
  Serious: Yes (Other)
  Sender: FDA-Public Use
  Company Number: None

PATIENT
  Age: 65 Year
  Sex: Female
  Weight: 78.0187 kg

DRUGS (2)
  1. GABAPENTIN [Suspect]
     Indication: NEURALGIA
     Dosage: 600 MG  TID  PO
     Route: 048
     Dates: start: 20070202, end: 20070326
  2. GABAPENTIN [Suspect]
     Indication: RADICULOPATHY
     Dosage: 600 MG  TID  PO
     Route: 048
     Dates: start: 20070202, end: 20070326

REACTIONS (2)
  - NERVOUS SYSTEM DISORDER [None]
  - PHARMACEUTICAL PRODUCT COMPLAINT [None]
